FAERS Safety Report 7626061-4 (Version None)
Quarter: 2011Q3

REPORT INFORMATION
  Report Type: 
  Country: None (occurrence: None)
  Receive Date: 20110721
  Receipt Date: 20110715
  Transmission Date: 20111222
  Serious: Yes (Death, Other)
  Sender: FDA-Public Use
  Company Number: US-AMGEN-QUU420658

PATIENT
  Age: 86 Year
  Sex: Female
  Weight: 60.5 kg

DRUGS (6)
  1. IMMUNOGLOBULINS [Concomitant]
     Dosage: UNK UNK, UNK
     Route: 042
     Dates: start: 20081025
  2. NPLATE [Suspect]
     Indication: IDIOPATHIC THROMBOCYTOPENIC PURPURA
     Dosage: .5 A?G/KG, UNK
     Dates: start: 20091119, end: 20100324
  3. NPLATE [Suspect]
     Dates: start: 20091119, end: 20100324
  4. CORTICOSTEROID NOS [Concomitant]
     Dosage: UNK UNK, UNK
     Dates: start: 20081024
  5. IMURAN [Concomitant]
     Dosage: 75 MG, BID
  6. PREDNISONE [Concomitant]
     Dosage: 5 MG, QD

REACTIONS (6)
  - THERAPEUTIC RESPONSE DECREASED [None]
  - THROMBOSIS [None]
  - EMBOLISM [None]
  - THROMBOCYTOPENIA [None]
  - ECCHYMOSIS [None]
  - DEATH [None]
